FAERS Safety Report 10452505 (Version 1)
Quarter: 2014Q3

REPORT INFORMATION
  Report Type: Spontaneous
  Country: AU (occurrence: None)
  Receive Date: 20140911
  Receipt Date: 20140911
  Transmission Date: 20150326
  Serious: Yes (Other)
  Sender: FDA-Public Use
  Company Number: VAL_03377_2014

PATIENT
  Sex: Male

DRUGS (7)
  1. LASIX [Concomitant]
     Active Substance: FUROSEMIDE
  2. METOPROLOL [Suspect]
     Active Substance: METOPROLOL
     Indication: PRODUCT USED FOR UNKNOWN INDICATION
     Dosage: DF
  3. ASA [Concomitant]
     Active Substance: ASPIRIN
  4. RAMIPRIL. [Concomitant]
     Active Substance: RAMIPRIL
  5. HYDREA [Concomitant]
     Active Substance: HYDROXYUREA
  6. VITAMIN D [Concomitant]
     Active Substance: CHOLECALCIFEROL
  7. LIPITOR [Concomitant]
     Active Substance: ATORVASTATIN CALCIUM

REACTIONS (14)
  - Weight decreased [None]
  - Splenomegaly [None]
  - Renal failure chronic [None]
  - Haemoglobin decreased [None]
  - Anion gap increased [None]
  - Atrial fibrillation [None]
  - Platelet count increased [None]
  - Haematocrit decreased [None]
  - Mean cell volume abnormal [None]
  - Osteoarthritis [None]
  - Cachexia [None]
  - Myocardial ischaemia [None]
  - Hyperhidrosis [None]
  - Blood creatinine increased [None]
